FAERS Safety Report 18641861 (Version 1)
Quarter: 2020Q4

REPORT INFORMATION
  Report Type: Spontaneous
  Country: US (occurrence: US)
  Receive Date: 20201221
  Receipt Date: 20201221
  Transmission Date: 20210114
  Serious: Yes (Death, Hospitalization, Other)
  Sender: FDA-Public Use
  Company Number: US-MACLEODS PHARMACEUTICALS US LTD-MAC2020029477

PATIENT

DRUGS (11)
  1. TEDIZOLID [Concomitant]
     Active Substance: TEDIZOLID
     Indication: BRONCHOPULMONARY ASPERGILLOSIS
  2. CLOFAZIMINE [Concomitant]
     Active Substance: CLOFAZIMINE
     Indication: BRONCHOPULMONARY ASPERGILLOSIS
  3. OSELTAMIVIR 75MG [Suspect]
     Active Substance: OSELTAMIVIR
     Indication: INFLUENZA
     Dosage: 75 MILLIGRAM, BID
     Route: 048
  4. MEROPENEM-VABORBACTAM [Concomitant]
     Indication: MYCOBACTERIUM ABSCESSUS INFECTION
     Dosage: UNK
     Route: 065
  5. TIGECYCLINE. [Concomitant]
     Active Substance: TIGECYCLINE
     Indication: MYCOBACTERIUM ABSCESSUS INFECTION
     Dosage: UNK
     Route: 065
  6. VORICONAZOLE. [Concomitant]
     Active Substance: VORICONAZOLE
     Indication: MYCOBACTERIUM ABSCESSUS INFECTION
     Dosage: UNK
     Route: 065
  7. TIGECYCLINE. [Concomitant]
     Active Substance: TIGECYCLINE
     Indication: BRONCHOPULMONARY ASPERGILLOSIS
  8. MEROPENEM-VABORBACTAM [Concomitant]
     Indication: BRONCHOPULMONARY ASPERGILLOSIS
  9. TEDIZOLID [Concomitant]
     Active Substance: TEDIZOLID
     Indication: MYCOBACTERIUM ABSCESSUS INFECTION
     Dosage: UNK
     Route: 065
  10. VORICONAZOLE. [Concomitant]
     Active Substance: VORICONAZOLE
     Indication: BRONCHOPULMONARY ASPERGILLOSIS
  11. CLOFAZIMINE [Concomitant]
     Active Substance: CLOFAZIMINE
     Indication: MYCOBACTERIUM ABSCESSUS INFECTION
     Dosage: UNK
     Route: 065

REACTIONS (5)
  - Treatment failure [Unknown]
  - Drug resistance [Unknown]
  - Hypoxia [Unknown]
  - Condition aggravated [Unknown]
  - Death [Fatal]
